FAERS Safety Report 5578711-4 (Version None)
Quarter: 2008Q1

REPORT INFORMATION
  Report Type: 
  Country: None (occurrence: None)
  Receive Date: 20080102
  Receipt Date: 20071220
  Transmission Date: 20080703
  Serious: Yes (Death, Other)
  Sender: FDA-Public Use
  Company Number: JP-BRISTOL-MYERS SQUIBB COMPANY-14026231

PATIENT
  Age: 32 Year
  Sex: Male

DRUGS (5)
  1. ENDOXAN [Suspect]
     Indication: LYMPHOMA
     Dates: start: 20060201
  2. VINCRISTINE SULFATE [Suspect]
     Indication: LYMPHOMA
     Dates: start: 20060201
  3. DOXORUBICIN HCL [Suspect]
     Indication: LYMPHOMA
     Dates: start: 20060201
  4. PREDONINE [Suspect]
     Indication: LYMPHOMA
     Dates: start: 20060201
  5. RADIATION THERAPY [Concomitant]

REACTIONS (2)
  - BONE MARROW FAILURE [None]
  - NEPHROPATHY [None]
